FAERS Safety Report 7892911-X (Version None)
Quarter: 2011Q4

REPORT INFORMATION
  Report Type: 
  Country: None (occurrence: None)
  Receive Date: 20111104
  Receipt Date: 20111031
  Transmission Date: 20120403
  Serious: Yes (Other)
  Sender: FDA-Public Use
  Company Number: US-PFIZER INC-2011266696

PATIENT
  Age: 70 Year
  Sex: Female

DRUGS (3)
  1. XANAX [Suspect]
     Dosage: 0.25 MG, 1X/DAY
     Dates: start: 20111010
  2. VILAZODONE [Suspect]
     Dosage: 40 MG, 1X/DAY
     Route: 048
     Dates: start: 20110911
  3. WELLBUTRIN SR [Suspect]
     Dosage: 150 MG, 1X/DAY

REACTIONS (4)
  - FATIGUE [None]
  - DYSKINESIA [None]
  - DIARRHOEA [None]
  - TREMOR [None]
